FAERS Safety Report 18244021 (Version 3)
Quarter: 2021Q1

REPORT INFORMATION
  Report Type: Spontaneous
  Country: FR (occurrence: FR)
  Receive Date: 20200909
  Receipt Date: 20210321
  Transmission Date: 20210419
  Serious: Yes (Congenital Anomaly, Other)
  Sender: FDA-Public Use
  Company Number: FR-AUROBINDO-AUR-APL-2020-046433

PATIENT
  Age: 39 Week
  Sex: Male

DRUGS (7)
  1. DEPAKINE CHRONO [Suspect]
     Active Substance: VALPROATE SODIUM
     Indication: PRODUCT USED FOR UNKNOWN INDICATION
     Dosage: UNK
     Route: 064
     Dates: start: 20100909, end: 20101221
  2. DEPAKINE CHRONO [Suspect]
     Active Substance: VALPROATE SODIUM
     Dosage: 750 MILLIGRAM, ONCE A DAY
     Route: 064
     Dates: start: 20110414, end: 20110616
  3. LEVETIRACETAM. [Suspect]
     Active Substance: LEVETIRACETAM
     Indication: PRODUCT USED FOR UNKNOWN INDICATION
     Dosage: 500 MILLIGRAM, TWO TIMES A DAY
     Route: 064
     Dates: start: 2010, end: 20110616
  4. FOLIC ACID. [Concomitant]
     Active Substance: FOLIC ACID
     Indication: PRODUCT USED FOR UNKNOWN INDICATION
     Dosage: UNK
     Route: 064
     Dates: start: 20110414
  5. ZONISAMIDE. [Suspect]
     Active Substance: ZONISAMIDE
     Indication: PRODUCT USED FOR UNKNOWN INDICATION
     Dosage: 200 MILLIGRAM, TWO TIMES A DAY
     Route: 064
     Dates: start: 2010, end: 20110616
  6. DEPAKINE [Suspect]
     Active Substance: VALPROATE SODIUM
     Indication: PRODUCT USED FOR UNKNOWN INDICATION
     Dosage: UNK
     Route: 064
     Dates: start: 20100909, end: 20101221
  7. DEPAKINE CHRONO [Suspect]
     Active Substance: VALPROATE SODIUM
     Dosage: 1500 MILLIGRAM, ONCE A DAY
     Route: 064
     Dates: start: 20101222, end: 20110413

REACTIONS (30)
  - Language disorder [Unknown]
  - Sleep disorder [Unknown]
  - Stridor [Unknown]
  - Foetal exposure during pregnancy [Unknown]
  - Visual impairment [Unknown]
  - Nasopharyngitis [Unknown]
  - Heart disease congenital [Unknown]
  - Social (pragmatic) communication disorder [Unknown]
  - Scoliosis [Unknown]
  - Bruxism [Unknown]
  - Nasal disorder [Unknown]
  - Ear disorder [Unknown]
  - Oropharyngeal discomfort [Unknown]
  - Limb malformation [Unknown]
  - Phimosis [Unknown]
  - Ventricular septal defect [Unknown]
  - Inguinal hernia [Unknown]
  - Somnolence [Unknown]
  - Encopresis [Unknown]
  - Foot deformity [Unknown]
  - Psychomotor hyperactivity [Unknown]
  - Psychomotor skills impaired [Unknown]
  - Attention deficit hyperactivity disorder [Unknown]
  - Motor dysfunction [Unknown]
  - Dysmorphism [Unknown]
  - Enuresis [Unknown]
  - Speech disorder [Unknown]
  - Impulsive behaviour [Unknown]
  - Behaviour disorder [Unknown]
  - Ear infection [Unknown]

NARRATIVE: CASE EVENT DATE: 20110616
